FAERS Safety Report 16257863 (Version 1)
Quarter: 2019Q2

REPORT INFORMATION
  Report Type: Spontaneous
  Country: US (occurrence: US)
  Receive Date: 20190430
  Receipt Date: 20190430
  Transmission Date: 20190711
  Serious: Yes (Other)
  Sender: FDA-Public Use
  Company Number: US-COOPERSURGICAL, INC.-US-2019CPS000783

PATIENT

DRUGS (1)
  1. PARAGARD T 380A [Suspect]
     Active Substance: COPPER
     Indication: CONTRACEPTION
     Dosage: UNK
     Route: 015
     Dates: start: 20180719, end: 20190102

REACTIONS (4)
  - Device expulsion [Recovered/Resolved]
  - Abortion induced [Recovered/Resolved]
  - Drug ineffective [Recovered/Resolved]
  - Pregnancy with contraceptive device [Recovered/Resolved]

NARRATIVE: CASE EVENT DATE: 201812
